FAERS Safety Report 12540085 (Version 1)
Quarter: 2016Q3

REPORT INFORMATION
  Report Type: Spontaneous
  Country: US (occurrence: None)
  Receive Date: 20160707
  Receipt Date: 20160707
  Transmission Date: 20161109
  Serious: No
  Sender: FDA-Public Use
  Company Number: None

PATIENT
  Age: 28 Year
  Sex: Female
  Weight: 117.94 kg

DRUGS (1)
  1. HYDROXYCINE HCL 50 MG TABS, 50 MG [Suspect]
     Active Substance: HYDROXYZINE HYDROCHLORIDE
     Indication: ANXIETY
     Route: 048
     Dates: start: 20160705, end: 20160706

REACTIONS (1)
  - Increased appetite [None]

NARRATIVE: CASE EVENT DATE: 20160706
